FAERS Safety Report 17877066 (Version 1)
Quarter: 2020Q2

REPORT INFORMATION
  Report Type: Spontaneous
  Country: FR (occurrence: FR)
  Receive Date: 20200609
  Receipt Date: 20200609
  Transmission Date: 20200714
  Serious: Yes (Hospitalization)
  Sender: FDA-Public Use
  Company Number: FR-009507513-2006FRA000989

PATIENT
  Age: 53 Year
  Sex: Male

DRUGS (8)
  1. MIRTAZAPINE. [Suspect]
     Active Substance: MIRTAZAPINE
     Dosage: UNK
  2. SUBUTEX [Suspect]
     Active Substance: BUPRENORPHINE HYDROCHLORIDE
     Dosage: UNK
  3. VENLAFAXINE HYDROCHLORIDE. [Suspect]
     Active Substance: VENLAFAXINE HYDROCHLORIDE
     Dosage: UNK
  4. TERCIAN [Suspect]
     Active Substance: CYAMEMAZINE
     Dosage: UNK
  5. NOCTAMIDE [Suspect]
     Active Substance: LORMETAZEPAM
     Dosage: UNK
  6. OLANZAPINE. [Suspect]
     Active Substance: OLANZAPINE
     Dosage: UNK
  7. TRAMADOL HYDROCHLORIDE. [Suspect]
     Active Substance: TRAMADOL HYDROCHLORIDE
     Dosage: UNK
  8. OXAZEPAM. [Suspect]
     Active Substance: OXAZEPAM
     Dosage: UNK

REACTIONS (4)
  - Somnolence [Recovered/Resolved]
  - Drug use disorder [Recovered/Resolved]
  - Respiratory distress [Recovered/Resolved]
  - Miosis [Recovered/Resolved]
